FAERS Safety Report 7707250-7 (Version None)
Quarter: 2011Q3

REPORT INFORMATION
  Report Type: 
  Country: None (occurrence: None)
  Receive Date: 20110824
  Receipt Date: 20110815
  Transmission Date: 20111222
  Serious: Yes (Other)
  Sender: FDA-Public Use
  Company Number: PHHY2008DE29666

PATIENT
  Sex: Female

DRUGS (1)
  1. LDT600 [Suspect]
     Indication: HEPATITIS B
     Dosage: 600 MG, QD
     Route: 048
     Dates: start: 20080812, end: 20090904

REACTIONS (5)
  - FATIGUE [None]
  - HEPATITIS B DNA INCREASED [None]
  - DRUG INEFFECTIVE [None]
  - DEPRESSION [None]
  - ALOPECIA [None]
